FAERS Safety Report 11225843 (Version 5)
Quarter: 2015Q4

REPORT INFORMATION
  Report Type: Report from Study
  Country: JP (occurrence: JP)
  Receive Date: 20150629
  Receipt Date: 20151028
  Transmission Date: 20160304
  Serious: Yes (Death)
  Sender: FDA-Public Use
  Company Number: JP-OTSUKA-2015_004126

PATIENT

DRUGS (8)
  1. TOLVAPTAN [Suspect]
     Active Substance: TOLVAPTAN
     Dosage: 7.5 MG, QOD (IN THE MORNING)
     Route: 048
     Dates: start: 20140905, end: 20140917
  2. TOLVAPTAN [Suspect]
     Active Substance: TOLVAPTAN
     Indication: FLUID RETENTION
     Dosage: 15 MG, QD (IN THE MORNING)
     Route: 048
     Dates: start: 20140829, end: 20140904
  3. WARFARIN POTASSIUM [Concomitant]
     Active Substance: WARFARIN POTASSIUM
     Indication: PRODUCT USED FOR UNKNOWN INDICATION
     Dosage: 1.75 MG, DAILY DOSE
     Route: 048
     Dates: end: 20140918
  4. TOLVAPTAN [Suspect]
     Active Substance: TOLVAPTAN
     Dosage: 15 MG, QD (IN THE MORNING)
     Route: 048
     Dates: start: 20140918, end: 20141001
  5. ARTIST [Concomitant]
     Active Substance: CARVEDILOL
     Indication: LEFT VENTRICULAR FAILURE
     Dosage: 5 MG, DAILY DOSE
     Route: 048
     Dates: end: 20140918
  6. DIGOSIN [Concomitant]
     Active Substance: DIGOXIN
     Indication: LEFT VENTRICULAR FAILURE
     Dosage: 0.375 MG, DAILY DOSE
     Route: 048
     Dates: end: 20140918
  7. ALDACTONE A [Concomitant]
     Active Substance: SPIRONOLACTONE
     Indication: LEFT VENTRICULAR FAILURE
     Dosage: 25 MG, DAILY DOSE
     Route: 048
     Dates: end: 20140918
  8. FUROSEMIDE. [Concomitant]
     Active Substance: FUROSEMIDE
     Indication: LEFT VENTRICULAR FAILURE
     Dosage: 80 MG, DAILY DOSE
     Route: 048
     Dates: end: 20140918

REACTIONS (3)
  - Pollakiuria [Unknown]
  - Congestive cardiomyopathy [Fatal]
  - Thirst [Recovered/Resolved]

NARRATIVE: CASE EVENT DATE: 20140830
